FAERS Safety Report 19732812 (Version 1)
Quarter: 2021Q3

REPORT INFORMATION
  Report Type: Spontaneous
  Country: US (occurrence: US)
  Receive Date: 20210822
  Receipt Date: 20210822
  Transmission Date: 20211014
  Serious: No
  Sender: FDA-Public Use
  Company Number: None

PATIENT
  Age: 46 Year
  Sex: Female
  Weight: 67.5 kg

DRUGS (6)
  1. ICY HOT MEDICATED NO MESS APPLICATOR [Suspect]
     Active Substance: MENTHOL
     Indication: BACK PAIN
     Route: 061
     Dates: start: 20210821, end: 20210821
  2. ICY HOT MEDICATED NO MESS APPLICATOR [Suspect]
     Active Substance: MENTHOL
     Indication: NECK PAIN
     Route: 061
     Dates: start: 20210821, end: 20210821
  3. SERTRALINE [Concomitant]
     Active Substance: SERTRALINE HYDROCHLORIDE
  4. TRAZODONE [Concomitant]
     Active Substance: TRAZODONE HYDROCHLORIDE
  5. CETIRIZINE HCL [Concomitant]
     Active Substance: CETIRIZINE HYDROCHLORIDE
  6. RITUAL ESSENTIAL MULTIIVITAMIN FOR WOMEN [Concomitant]

REACTIONS (6)
  - Skin warm [None]
  - Drug hypersensitivity [None]
  - Sensitive skin [None]
  - Skin burning sensation [None]
  - Pain of skin [None]
  - Erythema [None]

NARRATIVE: CASE EVENT DATE: 20210821
